FAERS Safety Report 25069848 (Version 2)
Quarter: 2025Q1

REPORT INFORMATION
  Report Type: Spontaneous
  Country: FR (occurrence: FR)
  Receive Date: 20250312
  Receipt Date: 20250329
  Transmission Date: 20250408
  Serious: Yes (Hospitalization, Other)
  Sender: ABBVIE
  Company Number: FR-IPSEN Group, Research and Development-2025-05318

PATIENT
  Sex: Female

DRUGS (1)
  1. BOTULINUM TOXIN TYPE A [Suspect]
     Active Substance: BOTULINUM TOXIN TYPE A
     Indication: Skin cosmetic procedure
     Route: 051
     Dates: start: 2024, end: 2024

REACTIONS (8)
  - Choking [Unknown]
  - Product administered from unauthorised provider [Unknown]
  - Speech disorder [Unknown]
  - Dysphagia [Unknown]
  - Gait disturbance [Unknown]
  - Diplopia [Unknown]
  - Dyspnoea [Unknown]
  - Vision blurred [Unknown]

NARRATIVE: CASE EVENT DATE: 20240101
